FAERS Safety Report 14375224 (Version 1)
Quarter: 2018Q1

REPORT INFORMATION
  Report Type: Spontaneous
  Country: US (occurrence: US)
  Receive Date: 20180110
  Receipt Date: 20180110
  Transmission Date: 20180509
  Serious: Yes (Other)
  Sender: FDA-Public Use
  Company Number: None

PATIENT
  Age: 61 Year
  Sex: Female
  Weight: 92.16 kg

DRUGS (1)
  1. VARUBI [Suspect]
     Active Substance: ROLAPITANT

REACTIONS (4)
  - Breath sounds abnormal [None]
  - Oxygen saturation decreased [None]
  - Anxiety [None]
  - Dyspnoea [None]

NARRATIVE: CASE EVENT DATE: 20180109
